FAERS Safety Report 8968678 (Version 1)
Quarter: 2012Q4

REPORT INFORMATION
  Report Type: 
  Country: US (occurrence: US)
  Receive Date: 20121218
  Receipt Date: 20121218
  Transmission Date: 20130627
  Serious: No
  Sender: FDA-Public Use
  Company Number: US-PFIZER INC-2012307035

PATIENT
  Age: 62 Year
  Sex: Female
  Weight: 95.69 kg

DRUGS (16)
  1. LYRICA [Suspect]
     Indication: PAIN
     Dosage: 450 mg, 1x/day (150 mg 3 capsules once a day)
     Route: 048
  2. NAMENDA [Concomitant]
     Dosage: 5 (28)-10 (21) MG Tablet, As directed
  3. PROMETHAZINE HYDROCHLORIDE [Concomitant]
     Indication: NAUSEA
     Dosage: 25 mg, 1 tablet every 6 hrs as needed
  4. HYDROCODONE-ACETAMINOPHEN [Concomitant]
     Dosage: 10-500 MG, 1tablet as needed every 8 hrs
  5. CLONAZEPAM [Concomitant]
     Dosage: 1 mg, 2x/day
  6. REQUIP [Concomitant]
     Dosage: 0.5 mg, 2x/day
  7. FLEXERIL [Concomitant]
     Dosage: 10 mg, 1-2 tablet three times a day
  8. FAMOTIDINE [Concomitant]
     Dosage: 20 mg, 1x/day
  9. TRAZODONE HYDROCHLORIDE [Concomitant]
     Dosage: 50 mg, 1x/day
  10. ABILIFY [Concomitant]
     Dosage: 5 mg, 1x/day
  11. PERCOCET [Concomitant]
     Dosage: 7.5-325 MG, 1tablet as needed TID-QID PRN
  12. STOOL SOFTENER [Concomitant]
     Dosage: 100 mg, 1capsule as needed Once a day
  13. HYDROXYZINE HYDROCHLORIDE [Concomitant]
     Dosage: 25 mg, 1x/day
  14. HYDROCHLOROTHIAZIDE [Concomitant]
     Dosage: 25 mg, 1x/day
  15. LANSOPRAZOLE [Concomitant]
     Dosage: 30 mg, 1 capsule before a meal Once a day
  16. CITALOPRAM HYDROBROMIDE [Concomitant]
     Dosage: 20 mg, 1x/day

REACTIONS (5)
  - Joint swelling [Unknown]
  - Back pain [Unknown]
  - Neck pain [Unknown]
  - Arthralgia [Unknown]
  - Drug effect incomplete [Unknown]
